FAERS Safety Report 24712442 (Version 3)
Quarter: 2025Q1

REPORT INFORMATION
  Report Type: Spontaneous
  Country: US (occurrence: US)
  Receive Date: 20241209
  Receipt Date: 20250227
  Transmission Date: 20250408
  Serious: Yes (Other)
  Sender: PFIZER
  Company Number: US-PFIZER INC-202400318037

PATIENT
  Age: 67 Year
  Sex: Female

DRUGS (20)
  1. IBRANCE [Suspect]
     Active Substance: PALBOCICLIB
     Route: 048
     Dates: start: 20241004
  2. IBRANCE [Suspect]
     Active Substance: PALBOCICLIB
     Route: 048
     Dates: start: 20241004
  3. HYDROCODONE [Concomitant]
     Active Substance: HYDROCODONE
  4. MELATONIN [Concomitant]
     Active Substance: MELATONIN
  5. LETROZOLE [Concomitant]
     Active Substance: LETROZOLE
  6. LISINOPRIL [Concomitant]
     Active Substance: LISINOPRIL
  7. LANTUS SOLOSTAR [Concomitant]
     Active Substance: INSULIN GLARGINE
  8. HYDROCODONE BITARTRATE AND ACETAMINOPHEN [Concomitant]
     Active Substance: ACETAMINOPHEN\HYDROCODONE BITARTRATE
  9. ALBUTEROL [Concomitant]
     Active Substance: ALBUTEROL
  10. AMLODIPINE [Concomitant]
     Active Substance: AMLODIPINE BESYLATE
  11. BIOTIN [Concomitant]
     Active Substance: BIOTIN
  12. GABAPENTIN [Concomitant]
     Active Substance: GABAPENTIN
  13. HYDROCODONE BITARTRATE AND ACETAMINOPHEN [Concomitant]
     Active Substance: ACETAMINOPHEN\HYDROCODONE BITARTRATE
  14. HYDROXYZINE HYDROCHLORIDE [Concomitant]
     Active Substance: HYDROXYZINE HYDROCHLORIDE
  15. LACTULOSE [Concomitant]
     Active Substance: LACTULOSE
  16. LANTUS [Concomitant]
     Active Substance: INSULIN GLARGINE
  17. LOPERAMIDE [Concomitant]
     Active Substance: LOPERAMIDE
  18. ONDANSETRON [Concomitant]
     Active Substance: ONDANSETRON
  19. SENNA LEAF [Concomitant]
     Active Substance: SENNA LEAF
  20. TRAZODONE [Concomitant]
     Active Substance: TRAZODONE HYDROCHLORIDE

REACTIONS (2)
  - Nephrolithiasis [Recovered/Resolved]
  - Fatigue [Unknown]
